FAERS Safety Report 8598189-6 (Version None)
Quarter: 2012Q3

REPORT INFORMATION
  Report Type: 
  Country: None (occurrence: None)
  Receive Date: 20120816
  Receipt Date: 20120808
  Transmission Date: 20120928
  Serious: Yes (Hospitalization)
  Sender: FDA-Public Use
  Company Number: PHHO2008KR07684

PATIENT
  Sex: Female
  Weight: 46.3 kg

DRUGS (3)
  1. IMATINIB MESYLATE [Suspect]
     Dosage: 400 MG, QD
     Route: 048
     Dates: start: 20081104, end: 20120806
  2. IMATINIB MESYLATE [Suspect]
     Indication: CHRONIC MYELOID LEUKAEMIA
     Dosage: 400 MG, QD
     Route: 048
     Dates: start: 20080529, end: 20080619
  3. IMATINIB MESYLATE [Suspect]
     Dosage: 400 MG, QD
     Route: 048
     Dates: start: 20080705, end: 20081024

REACTIONS (7)
  - ABDOMINAL PAIN LOWER [None]
  - PYREXIA [None]
  - OVARIAN CYST RUPTURED [None]
  - ABDOMINAL PAIN [None]
  - ADNEXA UTERI CYST [None]
  - PERITONEAL HAEMORRHAGE [None]
  - PELVIC FLUID COLLECTION [None]
